FAERS Safety Report 5804014-6 (Version None)
Quarter: 2008Q3

REPORT INFORMATION
  Report Type: 
  Country: None (occurrence: None)
  Receive Date: 20080703
  Receipt Date: 20080627
  Transmission Date: 20090109
  Serious: Yes (Other)
  Sender: FDA-Public Use
  Company Number: 2008SP012876

PATIENT
  Age: 12 Year
  Sex: Male

DRUGS (2)
  1. CLARITIN [Suspect]
     Indication: DRUG USE FOR UNKNOWN INDICATION
  2. CLARITIN [Suspect]
     Indication: DRUG USE FOR UNKNOWN INDICATION

REACTIONS (1)
  - HALLUCINATION, VISUAL [None]
